FAERS Safety Report 26144153 (Version 1)
Quarter: 2025Q4

REPORT INFORMATION
  Report Type: Spontaneous
  Country: US (occurrence: US)
  Receive Date: 20251211
  Receipt Date: 20251211
  Transmission Date: 20260118
  Serious: Yes (Other)
  Sender: RANBAXY
  Company Number: US-SUN PHARMACEUTICAL INDUSTRIES INC-2025R1-540581

PATIENT
  Age: 72 Year
  Sex: Male

DRUGS (2)
  1. FLUPHENAZINE [Suspect]
     Active Substance: FLUPHENAZINE
     Indication: Tic
     Dosage: UNK
     Route: 065
  2. DEUTETRABENAZINE [Suspect]
     Active Substance: DEUTETRABENAZINE
     Indication: Tic
     Dosage: UNK
     Route: 065

REACTIONS (1)
  - Parkinsonism [Recovering/Resolving]
